FAERS Safety Report 4401559-0 (Version None)
Quarter: 2004Q3

REPORT INFORMATION
  Report Type: 
  Country: None (occurrence: None)
  Receive Date: 20040714
  Receipt Date: 20040706
  Transmission Date: 20050211
  Serious: Yes (Other)
  Sender: FDA-Public Use
  Company Number: US-JNJFOC-20040701071

PATIENT
  Age: 61 Year
  Sex: Female

DRUGS (9)
  1. IBUPROFEN [Suspect]
  2. METFORMIN HCL [Suspect]
  3. LISINOPRIL [Suspect]
  4. ASPIRIN TAB [Concomitant]
  5. ATENOLOL [Concomitant]
  6. CLOPIDOGREL (CLOPIDOGREL) [Concomitant]
  7. AMLODIPINE [Concomitant]
  8. NITRATE (ORGANIC NITRATES) [Concomitant]
  9. STARLIX [Concomitant]

REACTIONS (14)
  - BLOOD GLUCOSE INCREASED [None]
  - BLOOD LACTIC ACID INCREASED [None]
  - BLOOD POTASSIUM INCREASED [None]
  - BLOOD PRESSURE DECREASED [None]
  - BLOOD PRESSURE DIASTOLIC DECREASED [None]
  - DRUG TOXICITY [None]
  - DRY SKIN [None]
  - GENERAL PHYSICAL HEALTH DETERIORATION [None]
  - HAEMODIALYSIS [None]
  - HEART RATE DECREASED [None]
  - PANCREATITIS [None]
  - PANCREATITIS ACUTE [None]
  - RENAL FAILURE [None]
  - URINE OUTPUT DECREASED [None]
